FAERS Safety Report 5219632-6 (Version None)
Quarter: 2007Q1

REPORT INFORMATION
  Report Type: 
  Country: None (occurrence: None)
  Receive Date: 20070125
  Receipt Date: 20070110
  Transmission Date: 20070707
  Serious: Yes (Other)
  Sender: FDA-Public Use
  Company Number: US-SHR-US-2006-017264

PATIENT
  Age: 58 Year
  Sex: Female

DRUGS (3)
  1. BETASERON [Suspect]
     Dosage: 8 MIU, EVERY 2D
     Route: 058
     Dates: start: 20060315
  2. TYLENOL [Concomitant]
     Indication: PREMEDICATION
     Dosage: UNK, UNK
  3. ANTINEOPLASTIC AGENTS [Suspect]
     Dosage: FIVE TREATMENTS
     Dates: start: 20051101, end: 20060301

REACTIONS (6)
  - ASTHENIA [None]
  - DYSPEPSIA [None]
  - GINGIVAL INFECTION [None]
  - INFLUENZA LIKE ILLNESS [None]
  - NAUSEA [None]
  - OSTEOMYELITIS [None]
